FAERS Safety Report 14531816 (Version 1)
Quarter: 2018Q1

REPORT INFORMATION
  Report Type: Spontaneous
  Country: CR (occurrence: CR)
  Receive Date: 20180214
  Receipt Date: 20180214
  Transmission Date: 20180509
  Serious: Yes (Hospitalization, Other)
  Sender: FDA-Public Use
  Company Number: CR-BAYER-2018-024926

PATIENT
  Sex: Female

DRUGS (1)
  1. QLAIRA [Suspect]
     Active Substance: DIENOGEST\ESTRADIOL VALERATE
     Indication: CONTRACEPTION
     Dosage: 1 DF, QOD
     Route: 048
     Dates: start: 2016

REACTIONS (5)
  - Vasodilatation [None]
  - Peripheral venous disease [None]
  - Varicose vein [None]
  - Limb operation [None]
  - Knee operation [None]
